FAERS Safety Report 19083988 (Version 5)
Quarter: 2021Q4

REPORT INFORMATION
  Report Type: Spontaneous
  Country: CO (occurrence: CO)
  Receive Date: 20210401
  Receipt Date: 20211013
  Transmission Date: 20220303
  Serious: Yes (Hospitalization, Other)
  Sender: FDA-Public Use
  Company Number: CO-PFIZER INC-2021303258

PATIENT
  Age: 5 Year
  Sex: Male
  Weight: 33 kg

DRUGS (4)
  1. GENOTROPIN [Suspect]
     Active Substance: SOMATROPIN
     Indication: Growth hormone deficiency
     Dosage: 5 CLICKS, DAILY
     Route: 058
     Dates: start: 20121126
  2. GENOTROPIN [Suspect]
     Active Substance: SOMATROPIN
     Dosage: 5 CLICKS, DAILY
     Route: 058
     Dates: start: 202103
  3. GENOTROPIN [Suspect]
     Active Substance: SOMATROPIN
     Dosage: 990 UG 10 CLICKS DAILY
     Route: 058
  4. EUTHYROX [Concomitant]
     Active Substance: LEVOTHYROXINE SODIUM
     Dosage: UNK

REACTIONS (7)
  - Mineral metabolism disorder [Recovering/Resolving]
  - Headache [Recovering/Resolving]
  - Blood calcium decreased [Recovering/Resolving]
  - Blood phosphorus decreased [Recovering/Resolving]
  - Blood potassium decreased [Recovering/Resolving]
  - Hypothyroidism [Unknown]
  - Bone pain [Unknown]

NARRATIVE: CASE EVENT DATE: 20150101
